FAERS Safety Report 24540280 (Version 1)
Quarter: 2024Q4

REPORT INFORMATION
  Report Type: Spontaneous
  Country: US (occurrence: US)
  Receive Date: 20241023
  Receipt Date: 20241023
  Transmission Date: 20250115
  Serious: Yes (Other)
  Sender: BAUSCH AND LOMB
  Company Number: US-002147023-NVSC2023US168915

PATIENT
  Age: 64 Year
  Sex: Female

DRUGS (1)
  1. XIIDRA [Suspect]
     Active Substance: LIFITEGRAST
     Indication: Product used for unknown indication
     Route: 047

REACTIONS (5)
  - Blindness [Unknown]
  - Eye disorder [Unknown]
  - Eye irritation [Unknown]
  - Expired product administered [Unknown]
  - Inappropriate schedule of product administration [Unknown]
